FAERS Safety Report 10105558 (Version 2)
Quarter: 2014Q2

REPORT INFORMATION
  Report Type: Spontaneous
  Country: US (occurrence: US)
  Receive Date: 20140424
  Receipt Date: 20140502
  Transmission Date: 20141212
  Serious: Yes (Death, Hospitalization)
  Sender: FDA-Public Use
  Company Number: US-B.I. PHARMACEUTICALS,INC./RIDGEFIELD-2014-BI-18273BP

PATIENT
  Age: 69 Year
  Sex: Female

DRUGS (3)
  1. TRADJENTA [Suspect]
     Indication: DIABETES MELLITUS
     Dosage: 5 MG
     Route: 048
     Dates: start: 201307
  2. MULTIPLE DRUGS [Concomitant]
     Route: 065
  3. DIALYSIS [Concomitant]
     Route: 065

REACTIONS (2)
  - Pneumonia [Fatal]
  - Infection [Fatal]
